FAERS Safety Report 18365840 (Version 1)
Quarter: 2020Q4

REPORT INFORMATION
  Report Type: Spontaneous
  Country: ES (occurrence: ES)
  Receive Date: 20201009
  Receipt Date: 20201009
  Transmission Date: 20210114
  Serious: Yes (Other)
  Sender: FDA-Public Use
  Company Number: NVSC2020ES272507

PATIENT
  Age: 82 Year
  Sex: Male

DRUGS (3)
  1. CEFTRIAXONE. [Suspect]
     Active Substance: CEFTRIAXONE
     Indication: COVID-19
     Dosage: UNK
     Route: 065
  2. HYDROXYCHLOROQUINE [Suspect]
     Active Substance: HYDROXYCHLOROQUINE
     Indication: COVID-19
     Dosage: UNK
     Route: 065
  3. ERTAPENEM. [Suspect]
     Active Substance: ERTAPENEM SODIUM
     Indication: COVID-19
     Dosage: UNK
     Route: 065

REACTIONS (2)
  - Erythema multiforme [Recovered/Resolved]
  - Product use in unapproved indication [Unknown]
